FAERS Safety Report 10653954 (Version 1)
Quarter: 2014Q4

REPORT INFORMATION
  Report Type: Spontaneous
  Country: US (occurrence: None)
  Receive Date: 20141215
  Receipt Date: 20141215
  Transmission Date: 20150529
  Serious: Yes (Death)
  Sender: FDA-Public Use
  Company Number: None

PATIENT
  Age: 75 Year
  Sex: Male
  Weight: 97.52 kg

DRUGS (1)
  1. CEFEPIME [Suspect]
     Active Substance: CEFEPIME\CEFEPIME HYDROCHLORIDE
     Route: 042

REACTIONS (12)
  - Apnoea [None]
  - Muscle twitching [None]
  - Gastrointestinal disorder [None]
  - Fatigue [None]
  - Asthenia [None]
  - Nausea [None]
  - Hallucination [None]
  - Lethargy [None]
  - No therapeutic response [None]
  - Mental status changes [None]
  - Cardiac arrest [None]
  - Myoclonus [None]
